FAERS Safety Report 7656995-6 (Version None)
Quarter: 2011Q3

REPORT INFORMATION
  Report Type: 
  Country: None (occurrence: None)
  Receive Date: 20110804
  Receipt Date: 20110727
  Transmission Date: 20111222
  Serious: Yes (Other)
  Sender: FDA-Public Use
  Company Number: FR-JNJFOC-20110712310

PATIENT
  Age: 49 Year
  Sex: Female

DRUGS (4)
  1. LEVOFLOXACIN [Suspect]
     Indication: SEPTIC SHOCK
     Route: 048
     Dates: start: 20110713
  2. GENTAMICIN SULFATE [Suspect]
     Indication: SEPTIC SHOCK
     Route: 051
     Dates: start: 20110717
  3. CEFTRIAXONE [Suspect]
     Indication: SEPTIC SHOCK
     Route: 051
     Dates: start: 20110708
  4. AUGMENTIN '125' [Suspect]
     Indication: SEPTIC SHOCK
     Route: 065
     Dates: start: 20110718

REACTIONS (1)
  - DEAFNESS UNILATERAL [None]
